FAERS Safety Report 7244011-X (Version None)
Quarter: 2011Q1

REPORT INFORMATION
  Report Type: 
  Country: None (occurrence: None)
  Receive Date: 20110125
  Receipt Date: 20110119
  Transmission Date: 20110831
  Serious: Yes (Hospitalization)
  Sender: FDA-Public Use
  Company Number: FR-MERCK-1101FRA00106

PATIENT
  Age: 58 Year
  Sex: Female

DRUGS (8)
  1. IRBESARTAN [Concomitant]
     Indication: HYPERTENSION
     Route: 048
  2. ASPIRIN LYSINE [Concomitant]
     Route: 048
  3. DIHYDROERGOTAMINE MESYLATE [Concomitant]
     Indication: MIGRAINE
     Route: 048
  4. METFORMIN [Concomitant]
     Indication: TYPE 2 DIABETES MELLITUS
     Route: 048
  5. TIANEPTINE SODIUM [Concomitant]
     Route: 048
  6. EZETIMIBE AND SIMVASTATIN [Concomitant]
     Indication: DYSLIPIDAEMIA
     Route: 048
  7. JANUVIA [Suspect]
     Indication: TYPE 2 DIABETES MELLITUS
     Route: 048
     Dates: start: 20090101, end: 20100101
  8. METFORMIN HYDROCHLORIDE AND SITAGLIPTIN PHOSPHATE [Suspect]
     Indication: TYPE 2 DIABETES MELLITUS
     Route: 048
     Dates: start: 20100101

REACTIONS (1)
  - OPTIC ISCHAEMIC NEUROPATHY [None]
